FAERS Safety Report 24910288 (Version 1)
Quarter: 2025Q1

REPORT INFORMATION
  Report Type: Report from Study
  Country: US (occurrence: US)
  Receive Date: 20250131
  Receipt Date: 20250131
  Transmission Date: 20250408
  Serious: Yes (Death)
  Sender: DAIICHI
  Company Number: US-DSJP-DS-2024-116054-US

PATIENT
  Age: 57 Year
  Sex: Female

DRUGS (1)
  1. ENHERTU [Suspect]
     Active Substance: FAM-TRASTUZUMAB DERUXTECAN-NXKI
     Indication: Product used for unknown indication
     Dosage: 293 MG, ONCE EVERY 3 WK
     Route: 042
     Dates: start: 20241119, end: 20241119

REACTIONS (5)
  - Death [Fatal]
  - Haemoglobin abnormal [Unknown]
  - Dizziness [Unknown]
  - Platelet count decreased [Unknown]
  - Treatment delayed [Not Recovered/Not Resolved]

NARRATIVE: CASE EVENT DATE: 20241211
